FAERS Safety Report 6575547-2 (Version None)
Quarter: 2010Q1

REPORT INFORMATION
  Report Type: 
  Country: None (occurrence: None)
  Receive Date: 20100208
  Receipt Date: 20100208
  Transmission Date: 20100710
  Serious: Yes (Death, Life-Threatening, Hospitalization)
  Sender: FDA-Public Use
  Company Number: None

PATIENT
  Age: 68 Year
  Sex: Male
  Weight: 92.6 kg

DRUGS (1)
  1. MOXIFLOXACIN HCL [Suspect]
     Indication: PNEUMONIA
     Dosage: 400 MG EVERY DAY PO
     Route: 048
     Dates: start: 20100120, end: 20100124

REACTIONS (11)
  - CONFUSIONAL STATE [None]
  - CSF PROTEIN INCREASED [None]
  - FATIGUE [None]
  - HYPOTENSION [None]
  - INAPPROPRIATE AFFECT [None]
  - LETHARGY [None]
  - MENTAL STATUS CHANGES [None]
  - RESPIRATORY DEPRESSION [None]
  - SEDATION [None]
  - SLUGGISHNESS [None]
  - SOMNOLENCE [None]
